FAERS Safety Report 19265419 (Version 1)
Quarter: 2021Q2

REPORT INFORMATION
  Report Type: Spontaneous
  Country: ES (occurrence: ES)
  Receive Date: 20210517
  Receipt Date: 20210517
  Transmission Date: 20210717
  Serious: Yes (Hospitalization)
  Sender: FDA-Public Use
  Company Number: ES-PFIZER INC-2021485200

PATIENT
  Age: 49 Year
  Sex: Male

DRUGS (3)
  1. FELDENE [Suspect]
     Active Substance: PIROXICAM
     Indication: CHONDROPATHY
     Dosage: UNK, 1X/DAY
     Route: 048
  2. SASULEN [Suspect]
     Active Substance: PIROXICAM
     Indication: MUSCLE SPASMS
     Dosage: UNK, 1X/DAY
     Route: 048
  3. FELDENE FLASH [Suspect]
     Active Substance: PIROXICAM
     Indication: CHONDROPATHY
     Dosage: UNK, 1X/DAY
     Route: 048

REACTIONS (1)
  - Fixed eruption [Recovered/Resolved]
